FAERS Safety Report 9060739 (Version 1)
Quarter: 2013Q1

REPORT INFORMATION
  Report Type: Spontaneous
  Country: FR (occurrence: FR)
  Receive Date: 20130204
  Receipt Date: 20130204
  Transmission Date: 20140127
  Serious: Yes (Life-Threatening)
  Sender: FDA-Public Use
  Company Number: FR-SP-2013-01422

PATIENT
  Age: 81 Year
  Sex: Male

DRUGS (1)
  1. IMMUCYST 81 MG [Suspect]
     Indication: BLADDER CANCER
     Route: 043

REACTIONS (2)
  - Granulomatous liver disease [Unknown]
  - Lung disorder [Unknown]
